FAERS Safety Report 10206233 (Version 2)
Quarter: 2014Q4

REPORT INFORMATION
  Report Type: Spontaneous
  Country: IT (occurrence: IT)
  Receive Date: 20140530
  Receipt Date: 20141215
  Transmission Date: 20150528
  Serious: Yes (Hospitalization)
  Sender: FDA-Public Use
  Company Number: IT-RANBAXY-2014R1-81466

PATIENT
  Age: 83 Year
  Sex: Female

DRUGS (2)
  1. ACETAMINOPHEN. [Suspect]
     Active Substance: ACETAMINOPHEN
     Indication: INFLUENZA LIKE ILLNESS
     Dosage: 600 MG, DAILY
     Route: 065
  2. CHLORPHENIRAMINE [Suspect]
     Active Substance: CHLORPHENIRAMINE
     Indication: INFLUENZA LIKE ILLNESS
     Dosage: 4 MG, DAILY
     Route: 065

REACTIONS (3)
  - Acquired haemophilia [Recovered/Resolved]
  - Anaemia [Unknown]
  - Factor VIII inhibition [Recovered/Resolved]
